FAERS Safety Report 8513569-2 (Version None)
Quarter: 2012Q3

REPORT INFORMATION
  Report Type: 
  Country: None (occurrence: None)
  Receive Date: 20120717
  Receipt Date: 20120706
  Transmission Date: 20120928
  Serious: Yes (Death, Hospitalization)
  Sender: FDA-Public Use
  Company Number: ES-BRISTOL-MYERS SQUIBB COMPANY-16749939

PATIENT
  Age: 68 Year
  Sex: Male

DRUGS (7)
  1. ACETAMINOPHEN [Concomitant]
     Indication: MUSCULOSKELETAL CHEST PAIN
     Dates: end: 20120525
  2. CISPLATIN [Suspect]
     Indication: ADENOCARCINOMA
     Route: 042
     Dates: start: 20120417, end: 20120525
  3. SIMVASTATIN [Concomitant]
     Indication: DYSLIPIDAEMIA
     Dates: end: 20120525
  4. IBUPROFEN [Concomitant]
     Indication: MUSCULOSKELETAL CHEST PAIN
     Dates: end: 20120525
  5. OMEPRAZOLE [Concomitant]
     Indication: PROPHYLAXIS
     Dates: end: 20120525
  6. PEMETREXED DISODIUM [Suspect]
     Indication: ADENOCARCINOMA
     Route: 042
     Dates: start: 20120417, end: 20120525
  7. METFORMIN HYDROCHLORIDE [Concomitant]
     Indication: DIABETES MELLITUS
     Dates: end: 20120525

REACTIONS (4)
  - BLOOD UREA INCREASED [None]
  - CONFUSIONAL STATE [None]
  - KETOACIDOSIS [None]
  - HYPERGLYCAEMIA [None]
